FAERS Safety Report 12781390 (Version 1)
Quarter: 2016Q3

REPORT INFORMATION
  Report Type: Spontaneous
  Country: FR (occurrence: FR)
  Receive Date: 20160926
  Receipt Date: 20160926
  Transmission Date: 20161109
  Serious: Yes (Disabling, Congenital Anomaly)
  Sender: FDA-Public Use
  Company Number: FR-ABBVIE-16P-056-1737901-00

PATIENT
  Age: 0 Day
  Sex: Male

DRUGS (1)
  1. DEPAKINE [Suspect]
     Active Substance: VALPROATE SODIUM
     Indication: MATERNAL EXPOSURE TIMING UNSPECIFIED
     Route: 064

REACTIONS (5)
  - Learning disorder [Unknown]
  - Anger [Unknown]
  - Foetal exposure during pregnancy [Unknown]
  - Eating disorder [Unknown]
  - Head deformity [Unknown]

NARRATIVE: CASE EVENT DATE: 1996
